FAERS Safety Report 20335995 (Version 1)
Quarter: 2022Q1

REPORT INFORMATION
  Report Type: Spontaneous
  Country: FR (occurrence: FR)
  Receive Date: 20220114
  Receipt Date: 20220114
  Transmission Date: 20220423
  Serious: Yes (Hospitalization)
  Sender: FDA-Public Use
  Company Number: None

PATIENT
  Age: 80 Year
  Sex: Male
  Weight: 58.4 kg

DRUGS (29)
  1. GABAPENTIN [Suspect]
     Active Substance: GABAPENTIN
     Dosage: 100 MG
     Dates: start: 20210820, end: 20210820
  2. GABAPENTIN [Suspect]
     Active Substance: GABAPENTIN
     Dosage: 400 MG
     Dates: start: 20210817, end: 20210819
  3. DULOXETINE HYDROCHLORIDE [Suspect]
     Active Substance: DULOXETINE HYDROCHLORIDE
     Dates: start: 20210716, end: 20210817
  4. MOXIFLOXACIN HYDROCHLORIDE [Suspect]
     Active Substance: MOXIFLOXACIN HYDROCHLORIDE
     Indication: Wound infection
     Dates: start: 20210811, end: 20210819
  5. RIFAMPIN [Suspect]
     Active Substance: RIFAMPIN
     Indication: Wound infection
     Dates: start: 20210811, end: 20210817
  6. MORPHINE SULFATE [Suspect]
     Active Substance: MORPHINE SULFATE
     Dosage: 10 MG
     Route: 048
     Dates: start: 20210814, end: 20210816
  7. MORPHINE SULFATE [Suspect]
     Active Substance: MORPHINE SULFATE
     Dosage: 20 MG IN THE MORNING, 10 MG IN THE EVENING
     Route: 048
     Dates: start: 20210816, end: 20210817
  8. MORPHINE SULFATE [Suspect]
     Active Substance: MORPHINE SULFATE
     Dosage: 10 MG
     Route: 048
     Dates: start: 20210817, end: 20210820
  9. NEFOPAM HYDROCHLORIDE [Suspect]
     Active Substance: NEFOPAM HYDROCHLORIDE
     Dates: start: 20210814, end: 20210820
  10. CLINDAMYCIN [Suspect]
     Active Substance: CLINDAMYCIN
     Indication: Wound infection
     Dosage: UNIT DOSE : 600 MG, CLINDAMYCINE BASE
     Route: 048
     Dates: start: 20210817, end: 20210822
  11. CLINDAMYCIN [Suspect]
     Active Substance: CLINDAMYCIN
     Dosage: 600 MG
     Route: 041
     Dates: start: 20210824, end: 20210830
  12. CLINDAMYCIN [Suspect]
     Active Substance: CLINDAMYCIN
     Dosage: 600 MG
     Route: 048
     Dates: start: 20210817, end: 20210825
  13. ONDANSETRON [Concomitant]
     Active Substance: ONDANSETRON
     Dosage: 8 MG
     Route: 048
     Dates: start: 20210815, end: 20210830
  14. TAZOBACTAM [Concomitant]
     Active Substance: TAZOBACTAM
     Indication: Wound infection
     Route: 041
     Dates: start: 20210819, end: 20210830
  15. OXYCODONE HYDROCHLORIDE [Concomitant]
     Active Substance: OXYCODONE HYDROCHLORIDE
     Dosage: 1 MG
     Route: 041
     Dates: start: 20210820, end: 20210821
  16. OXYCODONE HYDROCHLORIDE [Concomitant]
     Active Substance: OXYCODONE HYDROCHLORIDE
     Route: 041
     Dates: start: 20210903, end: 20210906
  17. OXYCODONE HYDROCHLORIDE [Concomitant]
     Active Substance: OXYCODONE HYDROCHLORIDE
     Route: 041
     Dates: start: 20210822, end: 20210827
  18. OXYCODONE HYDROCHLORIDE [Concomitant]
     Active Substance: OXYCODONE HYDROCHLORIDE
     Route: 041
     Dates: start: 20210821, end: 20210822
  19. OXYCODONE HYDROCHLORIDE [Concomitant]
     Active Substance: OXYCODONE HYDROCHLORIDE
     Route: 041
     Dates: start: 20210831, end: 20210903
  20. OXYCODONE HYDROCHLORIDE [Concomitant]
     Active Substance: OXYCODONE HYDROCHLORIDE
     Route: 041
     Dates: start: 20210827, end: 20210831
  21. PIPERACILLIN [Concomitant]
     Active Substance: PIPERACILLIN
     Indication: Wound infection
     Dosage: 4 GRAM, PIPERACILLINE BASE
     Route: 041
     Dates: start: 20210819, end: 20210830
  22. URAPIDIL [Concomitant]
     Active Substance: URAPIDIL
     Dosage: LP FORM, 60 MG
     Route: 048
     Dates: end: 20210822
  23. LERCANIDIPINE HYDROCHLORIDE [Concomitant]
     Active Substance: LERCANIDIPINE HYDROCHLORIDE
     Dosage: 20 MG
     Route: 048
     Dates: end: 20210822
  24. ASPIRIN [Concomitant]
     Active Substance: ASPIRIN
     Dosage: 100 MG
     Route: 048
     Dates: end: 20210822
  25. MIDAZOLAM [Concomitant]
     Active Substance: MIDAZOLAM
     Dosage: 24 MG
     Route: 041
     Dates: start: 20210902, end: 20210906
  26. MIDAZOLAM [Concomitant]
     Active Substance: MIDAZOLAM
     Dosage: 9.4 MG
     Route: 041
     Dates: start: 20210827, end: 20210830
  27. MIDAZOLAM [Concomitant]
     Active Substance: MIDAZOLAM
     Dosage: 2.4 MG
     Route: 041
     Dates: start: 20210821, end: 20210822
  28. MIDAZOLAM [Concomitant]
     Active Substance: MIDAZOLAM
     Dosage: 7 MG
     Route: 041
     Dates: start: 20210822, end: 20210827
  29. MIDAZOLAM [Concomitant]
     Active Substance: MIDAZOLAM
     Dosage: 18.6 MG
     Route: 041
     Dates: start: 20210830, end: 20210902

REACTIONS (1)
  - Cholestatic liver injury [Recovering/Resolving]

NARRATIVE: CASE EVENT DATE: 20210823
